FAERS Safety Report 4411888-2 (Version None)
Quarter: 2004Q3

REPORT INFORMATION
  Report Type: 
  Country: None (occurrence: None)
  Receive Date: 20040730
  Receipt Date: 20030903
  Transmission Date: 20050211
  Serious: No
  Sender: FDA-Public Use
  Company Number: US-GLAXOSMITHKLINE-A0424520A

PATIENT
  Age: 82 Year
  Sex: Female

DRUGS (3)
  1. ZANTAC [Suspect]
     Indication: DUODENAL ULCER
     Dosage: 150MG PER DAY
     Route: 048
     Dates: start: 20020301
  2. DIAZEPAM [Concomitant]
     Indication: SLEEP DISORDER
  3. LEVBID [Concomitant]
     Indication: CONSTIPATION

REACTIONS (1)
  - ALOPECIA [None]
